FAERS Safety Report 7603097-0 (Version None)
Quarter: 2011Q3

REPORT INFORMATION
  Report Type: 
  Country: None (occurrence: None)
  Receive Date: 20110712
  Receipt Date: 20110629
  Transmission Date: 20111222
  Serious: Yes (Hospitalization, Other)
  Sender: FDA-Public Use
  Company Number: US-AMGEN-USASP2011026916

PATIENT
  Age: 41 Year
  Sex: Female

DRUGS (2)
  1. CLOMID [Concomitant]
     Dosage: UNK
     Dates: start: 20020101
  2. ENBREL [Suspect]
     Indication: PSORIASIS
     Dosage: 50 MG, 2 TIMES/WK
     Dates: start: 20070101

REACTIONS (4)
  - GESTATIONAL HYPERTENSION [None]
  - INJECTION SITE URTICARIA [None]
  - CEPHALO-PELVIC DISPROPORTION [None]
  - PSORIASIS [None]
